FAERS Safety Report 9983636 (Version 1)
Quarter: 2014Q1

REPORT INFORMATION
  Report Type: Spontaneous
  Country: JP (occurrence: JP)
  Receive Date: 20140307
  Receipt Date: 20140307
  Transmission Date: 20141002
  Serious: Yes (Other)
  Sender: FDA-Public Use
  Company Number: JP-PFIZER INC-2014065362

PATIENT
  Age: 83 Year
  Sex: Male

DRUGS (8)
  1. NORVASC [Suspect]
     Indication: HYPERTENSION
     Dosage: 2.5 MG X 2 TABLETS ONCE DAILY, IN THE MORNING
     Route: 048
     Dates: start: 2004
  2. BLOPRESS [Concomitant]
     Dosage: UNK
     Dates: start: 2013
  3. AZILVA [Concomitant]
     Indication: OEDEMA
     Dosage: 40 MG, UNK
  4. LASIX [Concomitant]
     Indication: OEDEMA
     Dosage: UNK
  5. NATRIX [Concomitant]
     Indication: OEDEMA
     Dosage: UNK
  6. LIVACT [Concomitant]
     Dosage: UNK
  7. DAI-KENCHU-TO [Concomitant]
     Dosage: UNK
  8. FERROMIA [Concomitant]
     Indication: ANAEMIA
     Dosage: UNK

REACTIONS (3)
  - Colon cancer [Unknown]
  - Blood pressure inadequately controlled [Unknown]
  - Protein urine present [Unknown]
